FAERS Safety Report 8174114-7 (Version None)
Quarter: 2012Q1

REPORT INFORMATION
  Report Type: 
  Country: None (occurrence: None)
  Receive Date: 20120229
  Receipt Date: 20120216
  Transmission Date: 20120608
  Serious: Yes (Other)
  Sender: FDA-Public Use
  Company Number: JP-EISAI INC-E2090-01998-SPO-JP

PATIENT

DRUGS (1)
  1. ZONISAMIDE [Suspect]
     Indication: PARKINSON'S DISEASE
     Dosage: UNKNOWN
     Route: 048

REACTIONS (2)
  - PHOTOPHOBIA [None]
  - NEUROLEPTIC MALIGNANT SYNDROME [None]
